FAERS Safety Report 23763909 (Version 1)
Quarter: 2024Q2

REPORT INFORMATION
  Report Type: Spontaneous
  Country: US (occurrence: US)
  Receive Date: 20240419
  Receipt Date: 20240419
  Transmission Date: 20240716
  Serious: No
  Sender: FDA-Public Use
  Company Number: US-GALDERMA-US2024005749

PATIENT

DRUGS (21)
  1. PROACTIV MD ADAPALENE ACNE TREATMENT [Suspect]
     Active Substance: ADAPALENE
     Indication: Acne
     Dosage: 1 DOSAGE FORM, APPLIED ON FACE, NOSE, CHEEKS
     Route: 061
     Dates: start: 202306
  2. PROACTIV MD ADAPALENE ACNE TREATMENT [Suspect]
     Active Substance: ADAPALENE
     Indication: Scar
  3. PROACTIV MD ADAPALENE ACNE TREATMENT [Suspect]
     Active Substance: ADAPALENE
     Indication: Skin discolouration
  4. Proactiv MD Ultra Gentle Cleanser [Concomitant]
     Indication: Acne
     Dosage: 1 DOSAGE FORM, APPLIED ON FACE, NOSE, CHEEKS
     Route: 061
     Dates: start: 202306
  5. Proactiv MD Ultra Gentle Cleanser [Concomitant]
     Indication: Scar
  6. Proactiv MD Ultra Gentle Cleanser [Concomitant]
     Indication: Skin discolouration
  7. Proactiv MD Ultra Hydrating Moisturizer [Concomitant]
     Indication: Acne
     Dosage: 1 DOSAGE FORM, QD, APPLIED ON FACE, NOSE, CHEEKS
     Route: 061
     Dates: start: 202306
  8. Proactiv MD Ultra Hydrating Moisturizer [Concomitant]
     Indication: Scar
  9. Proactiv MD Ultra Hydrating Moisturizer [Concomitant]
     Indication: Skin discolouration
  10. COSMETICS [Concomitant]
     Active Substance: COSMETICS
     Indication: Acne
     Dosage: 1 DOSAGE FORM, QD, APPLIED ON FACE, NOSE, CHEEKS
     Route: 061
     Dates: start: 202306
  11. COSMETICS [Concomitant]
     Active Substance: COSMETICS
     Indication: Scar
  12. COSMETICS [Concomitant]
     Active Substance: COSMETICS
     Indication: Skin discolouration
  13. COSMETICS [Concomitant]
     Active Substance: COSMETICS
     Indication: Acne
     Dosage: 1 DOSAGE FORM, QD, APPLIED ON FACE, NOSE, CHEEKS
     Route: 061
  14. COSMETICS [Concomitant]
     Active Substance: COSMETICS
     Indication: Scar
  15. COSMETICS [Concomitant]
     Active Substance: COSMETICS
     Indication: Skin discolouration
  16. PROACTIV BLACKHEAD DISSOLVING [Concomitant]
     Active Substance: SALICYLIC ACID
     Indication: Acne
     Dosage: 1 DOSAGE FORM, QD, APPLIED ON FACE, NOSE, CHEEKS
     Route: 061
     Dates: start: 202306
  17. PROACTIV BLACKHEAD DISSOLVING [Concomitant]
     Active Substance: SALICYLIC ACID
     Indication: Scar
  18. PROACTIV BLACKHEAD DISSOLVING [Concomitant]
     Active Substance: SALICYLIC ACID
     Indication: Skin discolouration
  19. PROACTIV ACNE BODY WASH [Concomitant]
     Active Substance: SALICYLIC ACID
     Indication: Acne
     Dosage: 1 DOSAGE FORM, QD, APPLIED ON FACE, NOSE, CHEEKS
     Route: 061
     Dates: start: 202306
  20. PROACTIV ACNE BODY WASH [Concomitant]
     Active Substance: SALICYLIC ACID
     Indication: Scar
  21. PROACTIV ACNE BODY WASH [Concomitant]
     Active Substance: SALICYLIC ACID
     Indication: Skin discolouration

REACTIONS (1)
  - Drug ineffective [Unknown]
